FAERS Safety Report 6334973-7 (Version None)
Quarter: 2009Q3

REPORT INFORMATION
  Report Type: 
  Country: None (occurrence: None)
  Receive Date: 20090831
  Receipt Date: 20090825
  Transmission Date: 20100115
  Serious: Yes (Other)
  Sender: FDA-Public Use
  Company Number: HN-ELI_LILLY_AND_COMPANY-HN200908005867

PATIENT
  Age: 72 Year
  Sex: Female

DRUGS (5)
  1. PEMETREXED [Suspect]
     Dosage: 500 MG, OTHER
     Route: 065
     Dates: start: 20090814
  2. HYDROCODONE [Concomitant]
     Dosage: UNK, UNKNOWN
     Route: 065
  3. OMEPRAZOL [Concomitant]
     Dosage: UNK, UNKNOWN
     Route: 065
  4. LACTULOSE [Concomitant]
     Dosage: UNK, UNKNOWN
     Route: 065
  5. LEVOTHYROXINE [Concomitant]
     Dosage: UNK, UNKNOWN
     Route: 065

REACTIONS (1)
  - HAEMOPTYSIS [None]
